FAERS Safety Report 8353123-9 (Version None)
Quarter: 2012Q2

REPORT INFORMATION
  Report Type: 
  Country: None (occurrence: None)
  Receive Date: 20120511
  Receipt Date: 20120502
  Transmission Date: 20120825
  Serious: Yes (Other)
  Sender: FDA-Public Use
  Company Number: JP-ASTRAZENECA-2012SE15628

PATIENT
  Age: 61 Year
  Sex: Male
  Weight: 78 kg

DRUGS (3)
  1. MEPTIN [Concomitant]
     Indication: ASTHMA
     Route: 048
     Dates: end: 20101024
  2. ALBUTEROL SULFATE [Concomitant]
     Indication: ASTHMA
     Dosage: 2 PUFFS
     Route: 055
  3. SYMBICORT [Suspect]
     Indication: ASTHMA
     Dosage: 2 DF TWO TIMES A DAY
     Route: 055
     Dates: start: 20100921, end: 20101005

REACTIONS (2)
  - SOMNOLENCE [None]
  - SYNCOPE [None]
